FAERS Safety Report 15538984 (Version 1)
Quarter: 2018Q4

REPORT INFORMATION
  Report Type: Report from Study
  Country: US (occurrence: US)
  Receive Date: 20181022
  Receipt Date: 20181022
  Transmission Date: 20190205
  Serious: Yes (Other)
  Sender: FDA-Public Use
  Company Number: US-BAUSCH-BL-2018-028915

PATIENT
  Sex: Male

DRUGS (1)
  1. SILIQ [Suspect]
     Active Substance: BRODALUMAB
     Indication: PRODUCT USED FOR UNKNOWN INDICATION
     Dosage: 210 MG/1.5 ML SOSY, INJECTED 210 MG AT WEEK 0,1, 2 AS DIRECTED
     Route: 058

REACTIONS (5)
  - Bone disorder [Unknown]
  - Psoriasis [Unknown]
  - Nasal polyps [Unknown]
  - Feeling abnormal [Unknown]
  - Emotional disorder [Unknown]
